FAERS Safety Report 7540458-2 (Version None)
Quarter: 2011Q2

REPORT INFORMATION
  Report Type: 
  Country: None (occurrence: None)
  Receive Date: 20110603
  Receipt Date: 20110518
  Transmission Date: 20111010
  Serious: Yes (Hospitalization, Other)
  Sender: FDA-Public Use
  Company Number: 2011MA006070

PATIENT
  Age: 2 Year
  Sex: Male

DRUGS (1)
  1. IBUPROFEN [Suspect]
     Dosage: 1200 MG; X1; PO
     Route: 048

REACTIONS (12)
  - OEDEMA [None]
  - PYLORIC STENOSIS [None]
  - HYPOPHAGIA [None]
  - HAEMATEMESIS [None]
  - HAEMATOCHEZIA [None]
  - ERYTHEMA [None]
  - OVERDOSE [None]
  - FOOD INTOLERANCE [None]
  - WEIGHT DECREASED [None]
  - DEHYDRATION [None]
  - GASTRIC DILATATION [None]
  - ACCIDENTAL EXPOSURE [None]
